FAERS Safety Report 10010886 (Version 2)
Quarter: 2014Q1

REPORT INFORMATION
  Report Type: Spontaneous
  Country: US (occurrence: US)
  Receive Date: 20140314
  Receipt Date: 20140314
  Transmission Date: 20141002
  Serious: No
  Sender: FDA-Public Use
  Company Number: US-TEVA-459008USA

PATIENT
  Age: 52 Year
  Sex: Female

DRUGS (4)
  1. RIZATRIPTAN BENZOATE [Suspect]
     Indication: HEADACHE
     Dates: start: 20140124
  2. PRILOSEC [Concomitant]
  3. CELEXA [Concomitant]
  4. TOPAMAX [Concomitant]

REACTIONS (2)
  - Headache [Not Recovered/Not Resolved]
  - Drug ineffective [Recovered/Resolved]
